FAERS Safety Report 15209906 (Version 5)
Quarter: 2019Q1

REPORT INFORMATION
  Report Type: Report from Study
  Country: CA (occurrence: CA)
  Receive Date: 20180727
  Receipt Date: 20190322
  Transmission Date: 20190417
  Serious: Yes (Other)
  Sender: FDA-Public Use
  Company Number: CA-SHIRE-CA201827960

PATIENT

DRUGS (3)
  1. VON WILLEBRAND FACTOR(RECOMBINANT) [Suspect]
     Active Substance: VON WILLEBRAND FACTOR (RECOMBINANT)
     Indication: VON WILLEBRAND^S DISEASE
     Dosage: 40 U/KG, UNK
     Route: 042
     Dates: start: 20180711, end: 20180712
  2. VENOFER [Concomitant]
     Active Substance: IRON SUCROSE
     Indication: ANAEMIA
     Dosage: ONLY ONE DOSE
     Route: 042
     Dates: start: 20180712
  3. VON WILLEBRAND FACTOR(RECOMBINANT) [Suspect]
     Active Substance: VON WILLEBRAND FACTOR (RECOMBINANT)
     Dosage: 40 U/KG
     Route: 042
     Dates: start: 20181107

REACTIONS (5)
  - Exposure during pregnancy [Unknown]
  - Breast feeding [Unknown]
  - Angioedema [Recovered/Resolved]
  - Rash generalised [Not Recovered/Not Resolved]
  - Labour pain [Recovered/Resolved]

NARRATIVE: CASE EVENT DATE: 20180713
